FAERS Safety Report 6139004-X (Version None)
Quarter: 2009Q1

REPORT INFORMATION
  Report Type: 
  Country: None (occurrence: None)
  Receive Date: 20090331
  Receipt Date: 20090324
  Transmission Date: 20090719
  Serious: Yes (Hospitalization)
  Sender: FDA-Public Use
  Company Number: US-ABBOTT-09P-163-0564558-00

PATIENT
  Sex: Female
  Weight: 87.168 kg

DRUGS (4)
  1. SYNTHROID [Suspect]
     Indication: THYROIDECTOMY
     Dates: start: 20080901
  2. NEXIUM [Concomitant]
     Indication: DRUG USE FOR UNKNOWN INDICATION
  3. ZOCOR [Concomitant]
     Indication: DRUG USE FOR UNKNOWN INDICATION
  4. HUMALOG INSULIN FOR PUMP [Concomitant]
     Indication: DRUG USE FOR UNKNOWN INDICATION

REACTIONS (3)
  - BLOOD THYROID STIMULATING HORMONE DECREASED [None]
  - THYROID CANCER [None]
  - WEIGHT INCREASED [None]
